FAERS Safety Report 8109774-X (Version None)
Quarter: 2012Q1

REPORT INFORMATION
  Report Type: 
  Country: None (occurrence: None)
  Receive Date: 20120202
  Receipt Date: 20120124
  Transmission Date: 20120608
  Serious: Yes (Hospitalization)
  Sender: FDA-Public Use
  Company Number: US-ELI_LILLY_AND_COMPANY-US201201008193

PATIENT
  Sex: Male

DRUGS (5)
  1. HUMALOG MIX 75/25 [Suspect]
     Indication: TYPE 2 DIABETES MELLITUS
     Dosage: UNK, PRN
     Dates: start: 20100101
  2. METFORMIN HCL [Concomitant]
     Dosage: UNK
  3. INSULIN [Concomitant]
  4. HUMALOG MIX 75/25 [Suspect]
     Dosage: UNK, PRN
     Dates: start: 20100101
  5. NOVOLOG MIX 70/30 [Concomitant]

REACTIONS (1)
  - KNEE ARTHROPLASTY [None]
